FAERS Safety Report 16978848 (Version 1)
Quarter: 2019Q4

REPORT INFORMATION
  Report Type: Spontaneous
  Country: ES (occurrence: ES)
  Receive Date: 20191031
  Receipt Date: 20191031
  Transmission Date: 20200122
  Serious: Yes (Death)
  Sender: FDA-Public Use
  Company Number: ES-TAKEDA-2019TUS061328

PATIENT

DRUGS (1)
  1. ENTYVIO [Suspect]
     Active Substance: VEDOLIZUMAB
     Indication: GRAFT VERSUS HOST DISEASE
     Dosage: 300 MILLIGRAM
     Route: 042

REACTIONS (2)
  - Respiratory tract infection [Fatal]
  - Off label use [Unknown]
